FAERS Safety Report 17047788 (Version 1)
Quarter: 2019Q4

REPORT INFORMATION
  Report Type: Spontaneous
  Country: ZA (occurrence: ZA)
  Receive Date: 20191119
  Receipt Date: 20191119
  Transmission Date: 20200122
  Serious: Yes (Other)
  Sender: FDA-Public Use
  Company Number: ZA-PFIZER INC-2019494849

PATIENT
  Age: 6 Year
  Sex: Female
  Weight: 23 kg

DRUGS (4)
  1. CHLOROQUINE. [Suspect]
     Active Substance: CHLOROQUINE
     Dosage: 100 MG, UNK
     Dates: start: 20161019
  2. AZATHIOPRINE. [Suspect]
     Active Substance: AZATHIOPRINE
     Dosage: 25 MG, DAILY STAT
     Dates: start: 20191010
  3. PREDNISONE. [Suspect]
     Active Substance: PREDNISONE
  4. METHOTREXATE SODIUM. [Suspect]
     Active Substance: METHOTREXATE SODIUM
     Dosage: 10 MG, UNK
     Dates: start: 20160707

REACTIONS (3)
  - Varicella virus test positive [Unknown]
  - Condition aggravated [Unknown]
  - Polyarthritis [Unknown]

NARRATIVE: CASE EVENT DATE: 20191027
